FAERS Safety Report 13960065 (Version 1)
Quarter: 2017Q3

REPORT INFORMATION
  Report Type: Spontaneous
  Country: US (occurrence: US)
  Receive Date: 20170912
  Receipt Date: 20170912
  Transmission Date: 20171128
  Serious: No
  Sender: FDA-Public Use
  Company Number: US-CELGENEUS-USA-20170901465

PATIENT
  Age: 68 Year
  Sex: Male

DRUGS (1)
  1. OTEZLA [Suspect]
     Active Substance: APREMILAST
     Indication: PSORIASIS
     Route: 048
     Dates: start: 201701, end: 201705

REACTIONS (4)
  - Weight decreased [Unknown]
  - Abdominal discomfort [Unknown]
  - Dysgeusia [Unknown]
  - Drug ineffective [Unknown]

NARRATIVE: CASE EVENT DATE: 201701
